FAERS Safety Report 13716597 (Version 10)
Quarter: 2019Q2

REPORT INFORMATION
  Report Type: Report from Study
  Country: CA (occurrence: CA)
  Receive Date: 20170705
  Receipt Date: 20190410
  Transmission Date: 20190711
  Serious: Yes (Hospitalization)
  Sender: FDA-Public Use
  Company Number: PHHY2017CA096726

PATIENT
  Age: 56 Year
  Sex: Female

DRUGS (8)
  1. WATER PILLS [Concomitant]
     Active Substance: UNSPECIFIED INGREDIENT
     Indication: PRODUCT USED FOR UNKNOWN INDICATION
     Route: 065
  2. GLEEVEC [Suspect]
     Active Substance: IMATINIB MESYLATE
     Indication: CHRONIC MYELOID LEUKAEMIA
     Dosage: 400 MG, QD
     Route: 048
     Dates: start: 20170627, end: 20170730
  3. HEPARIN [Concomitant]
     Active Substance: HEPARIN SODIUM
     Indication: PRODUCT USED FOR UNKNOWN INDICATION
     Dosage: UNK UNK, BID
     Route: 058
  4. GLEEVEC [Suspect]
     Active Substance: IMATINIB MESYLATE
     Dosage: 300 MG, QD
     Route: 048
     Dates: start: 20170803
  5. GLEEVEC [Suspect]
     Active Substance: IMATINIB MESYLATE
     Dosage: 300 MG, QD
     Route: 048
     Dates: start: 2017
  6. GLEEVEC [Suspect]
     Active Substance: IMATINIB MESYLATE
     Dosage: 400 MG, QD
     Route: 048
  7. GLEEVEC [Suspect]
     Active Substance: IMATINIB MESYLATE
     Dosage: 300 MG, UNK
     Route: 048
     Dates: start: 20171109
  8. ASPIRIN. [Concomitant]
     Active Substance: ASPIRIN
     Indication: PRODUCT USED FOR UNKNOWN INDICATION
     Route: 065

REACTIONS (27)
  - Pain [Unknown]
  - Weight decreased [Unknown]
  - Peripheral swelling [Recovered/Resolved]
  - Pyrexia [Recovered/Resolved]
  - Weight increased [Unknown]
  - Bronchitis [Unknown]
  - Blood blister [Unknown]
  - Fatigue [Unknown]
  - Lymphadenitis [Recovered/Resolved]
  - Nasopharyngitis [Unknown]
  - Loss of personal independence in daily activities [Unknown]
  - Dyspnoea [Unknown]
  - Productive cough [Unknown]
  - Hypotension [Unknown]
  - Pyrexia [Unknown]
  - Skin fissures [Unknown]
  - Skin atrophy [Unknown]
  - Swelling face [Recovered/Resolved]
  - Fluid retention [Unknown]
  - Dry skin [Unknown]
  - Swelling [Unknown]
  - Polyarthritis [Unknown]
  - Nausea [Unknown]
  - Viral infection [Unknown]
  - Raynaud^s phenomenon [Unknown]
  - Anaemia [Recovering/Resolving]
  - Malaise [Unknown]

NARRATIVE: CASE EVENT DATE: 201706
